FAERS Safety Report 20972265 (Version 1)
Quarter: 2022Q2

REPORT INFORMATION
  Report Type: Spontaneous
  Country: GB (occurrence: GB)
  Receive Date: 20220616
  Receipt Date: 20220616
  Transmission Date: 20220721
  Serious: Yes (Hospitalization, Other)
  Sender: FDA-Public Use
  Company Number: GB-CELLTRION INC.-2022GB009164

PATIENT

DRUGS (2)
  1. INFLIXIMAB [Suspect]
     Active Substance: INFLIXIMAB
     Indication: Crohn^s disease
     Dosage: 120 MILLIGRAM PREFILLED PEN (E2W TO BE STARTED ON WEEK 6)
     Route: 058
  2. INFLIXIMAB [Suspect]
     Active Substance: INFLIXIMAB
     Dosage: WEEK 0 GIVEN 08/02/2022, MAINTENANCE DOSE TO BE ADMINISTERED ON WEEK 6

REACTIONS (2)
  - Lower respiratory tract infection [Unknown]
  - Crohn^s disease [Unknown]
